FAERS Safety Report 10183271 (Version 1)
Quarter: 2014Q2

REPORT INFORMATION
  Report Type: Spontaneous
  Country: PL (occurrence: PL)
  Receive Date: 20140520
  Receipt Date: 20140520
  Transmission Date: 20141212
  Serious: Yes (Other)
  Sender: FDA-Public Use
  Company Number: PL-SA-2014SA064172

PATIENT
  Sex: 0

DRUGS (1)
  1. INDAPAMIDE [Suspect]
     Indication: HYPERTENSION
     Route: 065

REACTIONS (1)
  - Pemphigus [Unknown]
